FAERS Safety Report 7270822-0 (Version None)
Quarter: 2011Q1

REPORT INFORMATION
  Report Type: 
  Country: None (occurrence: None)
  Receive Date: 20110202
  Receipt Date: 20110126
  Transmission Date: 20110831
  Serious: Yes (Hospitalization)
  Sender: FDA-Public Use
  Company Number: US-JNJFOC-20110107346

PATIENT
  Age: 6 Year
  Sex: Male
  Weight: 26.31 kg

DRUGS (2)
  1. JUNIOR STRENGTH TYLENOL BUBBLEGUM [Suspect]
     Indication: HEADACHE
     Route: 048
  2. JUNIOR STRENGTH TYLENOL BUBBLEGUM [Suspect]
     Route: 048

REACTIONS (4)
  - DYSPNOEA [None]
  - PRODUCT QUALITY ISSUE [None]
  - URTICARIA [None]
  - INCORRECT DOSE ADMINISTERED [None]
